FAERS Safety Report 13807726 (Version 1)
Quarter: 2017Q3

REPORT INFORMATION
  Report Type: Spontaneous
  Country: DE (occurrence: DE)
  Receive Date: 20170728
  Receipt Date: 20170728
  Transmission Date: 20171127
  Serious: Yes (Life-Threatening, Hospitalization, Other)
  Sender: FDA-Public Use
  Company Number: DE-ASTRAZENECA-2017SE74819

PATIENT
  Age: 657 Month
  Sex: Female
  Weight: 55 kg

DRUGS (4)
  1. SYMBICORT [Suspect]
     Active Substance: BUDESONIDE\FORMOTEROL FUMARATE DIHYDRATE
     Indication: ASTHMA
     Dosage: 160/4.5, UNKNOWN UNKNOWN
     Route: 055
  2. SYMBICORT [Suspect]
     Active Substance: BUDESONIDE\FORMOTEROL FUMARATE DIHYDRATE
     Indication: ASTHMA
     Dosage: 160/4.5, UNKNOWN UNKNOWN
     Route: 055
  3. ALVESCO [Suspect]
     Active Substance: CICLESONIDE
     Route: 055
  4. SALBUTAMOL [Concomitant]
     Active Substance: ALBUTEROL

REACTIONS (6)
  - Status asthmaticus [Unknown]
  - Pruritus generalised [Recovered/Resolved]
  - Rash generalised [Recovered/Resolved]
  - Paraesthesia [Unknown]
  - Anaphylactic shock [Recovered/Resolved]
  - Swollen tongue [Unknown]

NARRATIVE: CASE EVENT DATE: 201705
